FAERS Safety Report 23345464 (Version 1)
Quarter: 2023Q4

REPORT INFORMATION
  Report Type: Spontaneous
  Country: FR (occurrence: FR)
  Receive Date: 20231228
  Receipt Date: 20231228
  Transmission Date: 20240109
  Serious: Yes (Other)
  Sender: FDA-Public Use
  Company Number: None

PATIENT
  Age: 42 Year
  Sex: Female

DRUGS (2)
  1. ADBRY [Suspect]
     Active Substance: TRALOKINUMAB-LDRM
     Indication: Dermatitis atopic
     Dosage: 150 MG, SOLUTION FOR INJECTION IN PRE-FILLED SYRINGE, 1 INJECTION EVERY 2 WEEKS
     Route: 058
     Dates: start: 20221122, end: 20231128
  2. METHOTREXATE [Suspect]
     Active Substance: METHOTREXATE
     Indication: Dermatitis atopic
     Dates: start: 2018, end: 2022

REACTIONS (1)
  - Gingival recession [Recovering/Resolving]

NARRATIVE: CASE EVENT DATE: 20231101
